FAERS Safety Report 14666123 (Version 2)
Quarter: 2018Q1

REPORT INFORMATION
  Report Type: Spontaneous
  Country: IN (occurrence: IN)
  Receive Date: 20180321
  Receipt Date: 20180321
  Transmission Date: 20180509
  Serious: Yes (Other)
  Sender: FDA-Public Use
  Company Number: PHHY2018IN039011

PATIENT
  Age: 49 Year
  Sex: Male

DRUGS (14)
  1. RIFAMPICIN [Suspect]
     Active Substance: RIFAMPIN
     Indication: TYPE 2 LEPRA REACTION
     Dosage: 600 MG, QMO
     Route: 065
  2. CLOFAZIMINE [Suspect]
     Active Substance: CLOFAZIMINE
     Dosage: 300 MG, QD
     Route: 065
  3. PREDNISOLONE. [Suspect]
     Active Substance: PREDNISOLONE
     Dosage: 40-80 MG, QD
     Route: 065
  4. THALIDOMIDE [Suspect]
     Active Substance: THALIDOMIDE
     Indication: TYPE 2 LEPRA REACTION
     Dosage: 300 MG, QD
     Route: 065
  5. PENTOXIFYLLINE. [Suspect]
     Active Substance: PENTOXIFYLLINE
     Indication: TYPE 2 LEPRA REACTION
     Dosage: 400 MG, TID
     Route: 065
  6. CLOFAZIMINE [Suspect]
     Active Substance: CLOFAZIMINE
     Indication: TYPE 2 LEPRA REACTION
     Dosage: 50 MG, QD
     Route: 065
  7. CLOFAZIMINE [Suspect]
     Active Substance: CLOFAZIMINE
     Dosage: 300 MG, QMO
     Route: 065
  8. MINOCYCLINE [Suspect]
     Active Substance: MINOCYCLINE\MINOCYCLINE HYDROCHLORIDE
     Indication: TYPE 2 LEPRA REACTION
     Dosage: 300 MG, QD
     Route: 065
  9. OFLOXACIN. [Suspect]
     Active Substance: OFLOXACIN
     Indication: TYPE 2 LEPRA REACTION
     Dosage: 400 MG, QD
     Route: 065
  10. AZATHIOPRINE. [Suspect]
     Active Substance: AZATHIOPRINE
     Indication: TYPE 2 LEPRA REACTION
     Dosage: 150 MG, QD
     Route: 065
  11. CLARITHROMYCIN. [Suspect]
     Active Substance: CLARITHROMYCIN
     Indication: TYPE 2 LEPRA REACTION
     Dosage: 1 G, QD
     Route: 065
  12. PREDNISOLONE. [Suspect]
     Active Substance: PREDNISOLONE
     Indication: TYPE 2 LEPRA REACTION
     Dosage: 40 MG, UNK
     Route: 048
  13. DAPSONE. [Suspect]
     Active Substance: DAPSONE
     Indication: TYPE 2 LEPRA REACTION
     Dosage: 100 MG, UNK
     Route: 065
  14. AZATHIOPRINE. [Suspect]
     Active Substance: AZATHIOPRINE
     Dosage: 300 MG, QD
     Route: 065

REACTIONS (8)
  - Pyrexia [Unknown]
  - Diabetes mellitus inadequate control [Unknown]
  - Oral candidiasis [Unknown]
  - Type 2 lepra reaction [Unknown]
  - Malaise [Unknown]
  - Neuritis [Unknown]
  - Diarrhoea [Unknown]
  - Abdominal pain [Unknown]
